FAERS Safety Report 12100991 (Version 3)
Quarter: 2016Q4

REPORT INFORMATION
  Report Type: Spontaneous
  Country: JP (occurrence: JP)
  Receive Date: 20160222
  Receipt Date: 20161129
  Transmission Date: 20170206
  Serious: Yes (Hospitalization)
  Sender: FDA-Public Use
  Company Number: JP-PFIZER INC-2016100664

PATIENT
  Age: 80 Year
  Sex: Female

DRUGS (1)
  1. ANCARON [Suspect]
     Active Substance: AMIODARONE HYDROCHLORIDE
     Indication: VENTRICULAR FIBRILLATION
     Dosage: 100 MG, DAILY
     Route: 048
     Dates: start: 2013

REACTIONS (5)
  - Drug level increased [Unknown]
  - Loss of consciousness [Unknown]
  - Device pacing issue [Recovered/Resolved]
  - Fall [Unknown]
  - Ventricular tachycardia [Unknown]

NARRATIVE: CASE EVENT DATE: 2014
